FAERS Safety Report 6165461-9 (Version None)
Quarter: 2009Q2

REPORT INFORMATION
  Report Type: 
  Country: None (occurrence: None)
  Receive Date: 20090423
  Receipt Date: 20090408
  Transmission Date: 20091009
  Serious: Yes (Other)
  Sender: FDA-Public Use
  Company Number: IT-GENENTECH-281164

PATIENT
  Sex: Female

DRUGS (5)
  1. MABTHERA [Suspect]
     Indication: DRUG USE FOR UNKNOWN INDICATION
     Dosage: 500 MG, UNK
     Route: 042
     Dates: start: 20090318, end: 20090318
  2. LEVOTHYROXINE SODIUM [Concomitant]
     Indication: DRUG USE FOR UNKNOWN INDICATION
     Dosage: UNK
     Dates: start: 20090101
  3. ACETAMINOPHEN [Concomitant]
     Indication: DRUG USE FOR UNKNOWN INDICATION
     Dosage: UNK
     Dates: start: 20090318, end: 20090318
  4. HYDROCORTISONE [Concomitant]
     Indication: HYPERSENSITIVITY
     Dosage: 100 MG, UNK
     Dates: start: 20090318, end: 20090318
  5. CHLORPHENIRAMINE MALEATE [Concomitant]
     Indication: DRUG USE FOR UNKNOWN INDICATION
     Dosage: UNK
     Dates: start: 20090318, end: 20090318

REACTIONS (5)
  - BLINDNESS TRANSIENT [None]
  - EYE OEDEMA [None]
  - EYE PAIN [None]
  - HYPERSENSITIVITY [None]
  - PHARYNGEAL OEDEMA [None]
